FAERS Safety Report 8258284-8 (Version None)
Quarter: 2012Q2

REPORT INFORMATION
  Report Type: 
  Country: None (occurrence: None)
  Receive Date: 20120404
  Receipt Date: 20120329
  Transmission Date: 20120825
  Serious: Yes (Death, Other)
  Sender: FDA-Public Use
  Company Number: US-BAYER-2011-096972

PATIENT
  Age: 58 Year
  Sex: Male
  Weight: 79.365 kg

DRUGS (7)
  1. ANTIBIOTICS [Concomitant]
     Dosage: UNK
     Dates: start: 20110901
  2. DERMATOLOGICALS [Concomitant]
  3. NEXAVAR [Suspect]
     Dosage: 400 MG, BID
     Dates: end: 20111201
  4. NEXAVAR [Suspect]
     Dosage: 200 MG, BID
     Route: 048
     Dates: start: 20111001
  5. NEXAVAR [Suspect]
     Indication: THYROID CANCER METASTATIC
     Dosage: 200 MG, BID
     Route: 048
     Dates: start: 20110927, end: 20111003
  6. NEXAVAR [Suspect]
     Dosage: 400 MG, BID
     Route: 048
     Dates: start: 20111004
  7. ANTIBIOTICS [Concomitant]
     Dosage: UNK
     Dates: start: 20110921, end: 20110901

REACTIONS (20)
  - DYSPNOEA [None]
  - GLOSSODYNIA [None]
  - OROPHARYNGEAL BLISTERING [None]
  - PNEUMONIA [None]
  - BLISTER [None]
  - DRY SKIN [None]
  - PALMAR-PLANTAR ERYTHRODYSAESTHESIA SYNDROME [None]
  - FEELING ABNORMAL [None]
  - FATIGUE [None]
  - WEIGHT DECREASED [None]
  - GENERAL PHYSICAL HEALTH DETERIORATION [None]
  - PULMONARY OEDEMA [None]
  - CONSTIPATION [None]
  - BEDRIDDEN [None]
  - PARAESTHESIA [None]
  - DERMATITIS ALLERGIC [None]
  - AGEUSIA [None]
  - DEATH [None]
  - DECREASED APPETITE [None]
  - ASTHENIA [None]
